FAERS Safety Report 9476181 (Version 1)
Quarter: 2013Q3

REPORT INFORMATION
  Report Type: Spontaneous
  Country: SZ (occurrence: None)
  Receive Date: 20130821
  Receipt Date: 20130821
  Transmission Date: 20140515
  Serious: Yes (Life-Threatening)
  Sender: FDA-Public Use
  Company Number: INT_00285_2013

PATIENT
  Age: 61 Year
  Sex: Male

DRUGS (4)
  1. CEFTRIAXON [Suspect]
     Indication: INFECTION
     Route: 042
  2. VANCOMYCIN [Concomitant]
  3. GENTAMYCIN [Concomitant]
  4. RIFAMPICIN [Concomitant]

REACTIONS (3)
  - Agranulocytosis [None]
  - Stomatitis [None]
  - Abscess [None]
